FAERS Safety Report 4799702-7 (Version None)
Quarter: 2005Q4

REPORT INFORMATION
  Report Type: 
  Country: None (occurrence: None)
  Receive Date: 20051011
  Receipt Date: 20050927
  Transmission Date: 20060501
  Serious: Yes (Hospitalization)
  Sender: FDA-Public Use
  Company Number: 2005136374

PATIENT
  Age: 85 Year
  Sex: Male

DRUGS (5)
  1. CLINDAMYCIN HYDROCHLORIDE [Suspect]
     Indication: ILL-DEFINED DISORDER
     Dosage: UNKNOWN, ORAL
     Route: 048
     Dates: start: 20050210, end: 20050420
  2. OXACILLIN [Suspect]
     Indication: ILL-DEFINED DISORDER
     Dosage: UNKNOWN, INTRAVENOUS
     Route: 042
     Dates: start: 20050119, end: 20050209
  3. FUSIDIC ACID [Suspect]
     Indication: ILL-DEFINED DISORDER
     Dosage: UNKNOWN, ORAL
     Route: 048
     Dates: start: 20050217, end: 20050420
  4. GENTAMICIN [Suspect]
     Indication: ILL-DEFINED DISORDER
     Dosage: UNKNOWN, ORAL
     Route: 048
     Dates: start: 20050119, end: 20050209
  5. RIFAMPICIN [Suspect]
     Indication: ILL-DEFINED DISORDER
     Dosage: UNKNOWN, ORAL
     Route: 048
     Dates: start: 20050210, end: 20050216

REACTIONS (6)
  - ANOREXIA [None]
  - ASTHENIA [None]
  - CONDITION AGGRAVATED [None]
  - DIFFICULTY IN WALKING [None]
  - DYSGEUSIA [None]
  - NORMOCHROMIC NORMOCYTIC ANAEMIA [None]
